FAERS Safety Report 14707876 (Version 4)
Quarter: 2018Q2

REPORT INFORMATION
  Report Type: Spontaneous
  Country: US (occurrence: US)
  Receive Date: 20180403
  Receipt Date: 20180531
  Transmission Date: 20180711
  Serious: No
  Sender: FDA-Public Use
  Company Number: US-PFIZER INC-2018131625

PATIENT
  Age: 57 Year
  Sex: Female
  Weight: 68 kg

DRUGS (2)
  1. LYRICA [Suspect]
     Active Substance: PREGABALIN
     Dosage: 150 MG, 2X/DAY
     Dates: start: 201802, end: 20180312
  2. LYRICA [Suspect]
     Active Substance: PREGABALIN
     Indication: FIBROMYALGIA
     Dosage: 75 MG, 2X/DAY
     Route: 048
     Dates: start: 20180219, end: 20180224

REACTIONS (7)
  - Drug ineffective [Unknown]
  - Dizziness [Recovered/Resolved]
  - Hypersensitivity [Recovered/Resolved]
  - Paraesthesia [Recovered/Resolved]
  - Blister [Not Recovered/Not Resolved]
  - Nausea [Recovered/Resolved]
  - Pruritus [Recovered/Resolved]

NARRATIVE: CASE EVENT DATE: 201802
